FAERS Safety Report 24112776 (Version 1)
Quarter: 2024Q3

REPORT INFORMATION
  Report Type: Spontaneous
  Country: US (occurrence: US)
  Receive Date: 20240719
  Receipt Date: 20240719
  Transmission Date: 20241017
  Serious: No
  Sender: NOVARTIS
  Company Number: US-002147023-NVSC2024US148155

PATIENT
  Age: 77 Year
  Sex: Female
  Weight: 67.986 kg

DRUGS (1)
  1. VOTRIENT [Suspect]
     Active Substance: PAZOPANIB HYDROCHLORIDE
     Indication: Sarcoma
     Dosage: 800 MG, QD
     Route: 048

REACTIONS (3)
  - Hepatic enzyme increased [Unknown]
  - Hypertension [Unknown]
  - Fatigue [Unknown]
